FAERS Safety Report 10098328 (Version 1)
Quarter: 2014Q2

REPORT INFORMATION
  Report Type: Other
  Country: FR (occurrence: FR)
  Receive Date: 20140423
  Receipt Date: 20140423
  Transmission Date: 20141212
  Serious: Yes (Life-Threatening)
  Sender: FDA-Public Use
  Company Number: FR-SUN PHARMACEUTICAL INDUSTRIES LTD-2014SUN00884

PATIENT
  Age: 81 Year
  Sex: Female

DRUGS (1)
  1. CARBOPLATINE SUN 10 MG/ML SOLUTION ? DILUER POUR PERFUSION [Suspect]
     Indication: OVARIAN CANCER
     Dosage: 495 MG, 1 COURSE
     Route: 042
     Dates: start: 20140319, end: 20140319

REACTIONS (1)
  - Circulatory collapse [Recovered/Resolved]
